FAERS Safety Report 7880738-4 (Version None)
Quarter: 2011Q4

REPORT INFORMATION
  Report Type: 
  Country: None (occurrence: None)
  Receive Date: 20111101
  Receipt Date: 20111019
  Transmission Date: 20120403
  Serious: Yes (Life-Threatening, Hospitalization, Congenital Anomaly, Other)
  Sender: FDA-Public Use
  Company Number: US-ELI_LILLY_AND_COMPANY-US201110005351

PATIENT

DRUGS (4)
  1. PROZAC [Suspect]
     Dosage: 30 MG, QD
     Route: 064
     Dates: end: 20010316
  2. AUGMENTAN ORAL [Concomitant]
     Dosage: UNK
     Route: 064
     Dates: start: 20010401
  3. MAXAIR [Concomitant]
     Dosage: UNK
     Route: 064
     Dates: start: 20010401
  4. PULMICORT [Concomitant]
     Dosage: UNK
     Route: 064
     Dates: start: 20010401

REACTIONS (12)
  - LARGE FOR DATES BABY [None]
  - ORAL CANDIDIASIS [None]
  - CEREBROVASCULAR ACCIDENT [None]
  - MATERNAL EXPOSURE DURING PREGNANCY [None]
  - DEVELOPMENTAL DELAY [None]
  - NASAL SEPTUM DEVIATION [None]
  - TRANSPOSITION OF THE GREAT VESSELS [None]
  - CEREBRAL PALSY [None]
  - HYPOPLASTIC RIGHT HEART SYNDROME [None]
  - GASTROOESOPHAGEAL REFLUX DISEASE [None]
  - HYPOCHLORAEMIA [None]
  - COARCTATION OF THE AORTA [None]
